FAERS Safety Report 19624521 (Version 1)
Quarter: 2021Q3

REPORT INFORMATION
  Report Type: Report from Study
  Country: None (occurrence: US)
  Receive Date: 20210729
  Receipt Date: 20210729
  Transmission Date: 20211014
  Serious: Yes (Other)
  Sender: FDA-Public Use
  Company Number: US-ABBVIE-21K-163-3952290-00

PATIENT
  Sex: Male
  Weight: 59.02 kg

DRUGS (1)
  1. HUMIRA [Suspect]
     Active Substance: ADALIMUMAB
     Indication: CROHN^S DISEASE
     Route: 058

REACTIONS (8)
  - Back disorder [Unknown]
  - Cachexia [Recovering/Resolving]
  - Weight decreased [Unknown]
  - Crohn^s disease [Recovering/Resolving]
  - Toothache [Recovering/Resolving]
  - Bone pain [Recovering/Resolving]
  - Muscle atrophy [Unknown]
  - Back pain [Recovering/Resolving]
